FAERS Safety Report 5900290-X (Version None)
Quarter: 2008Q3

REPORT INFORMATION
  Report Type: 
  Country: None (occurrence: None)
  Receive Date: 20080926
  Receipt Date: 20080923
  Transmission Date: 20090109
  Serious: Yes (Other)
  Sender: FDA-Public Use
  Company Number: PHEH2000US02960

PATIENT
  Age: 37 Year
  Sex: Female

DRUGS (3)
  1. MESANTOIN [Suspect]
     Indication: PARTIAL SEIZURES
     Route: 048
  2. TRILEPTAL [Suspect]
     Indication: PARTIAL SEIZURES
     Dosage: 1200 MG, QD
     Route: 048
  3. TEGRETOL [Concomitant]
     Dosage: UNK
     Route: 048
     Dates: start: 20000601, end: 20000601

REACTIONS (4)
  - AGITATION [None]
  - HEADACHE [None]
  - SUICIDAL IDEATION [None]
  - TREMOR [None]
